APPROVED DRUG PRODUCT: PRAMIPEXOLE DIHYDROCHLORIDE
Active Ingredient: PRAMIPEXOLE DIHYDROCHLORIDE
Strength: 1MG
Dosage Form/Route: TABLET;ORAL
Application: A211088 | Product #004 | TE Code: AB
Applicant: RISING PHARMA HOLDING INC
Approved: Oct 3, 2018 | RLD: No | RS: No | Type: RX